FAERS Safety Report 9800101 (Version 2)
Quarter: 2014Q1

REPORT INFORMATION
  Report Type: Spontaneous
  Country: US (occurrence: US)
  Receive Date: 20140106
  Receipt Date: 20140106
  Transmission Date: 20141002
  Serious: No
  Sender: FDA-Public Use
  Company Number: US-GILEAD-2010-0032161

PATIENT
  Age: 62 Year
  Sex: Female

DRUGS (12)
  1. LETAIRIS [Suspect]
     Indication: PULMONARY ARTERIAL HYPERTENSION
     Route: 048
     Dates: start: 20100903, end: 20100917
  2. ADCIRCA [Concomitant]
     Indication: PULMONARY ARTERIAL HYPERTENSION
  3. LASIX [Concomitant]
  4. GEMFIBROZIL [Concomitant]
  5. PRILOSEC [Concomitant]
  6. GABAPENTIN [Concomitant]
  7. SYNTHROID [Concomitant]
  8. ALLOPURINOL [Concomitant]
  9. PREDNISONE [Concomitant]
  10. AMBIEN [Concomitant]
  11. LEXAPRO [Concomitant]
  12. VITAMIN D [Concomitant]

REACTIONS (4)
  - Pain [Unknown]
  - Swelling [Unknown]
  - Dyspnoea [Unknown]
  - Weight increased [Recovering/Resolving]
